FAERS Safety Report 5919524-0 (Version None)
Quarter: 2008Q4

REPORT INFORMATION
  Report Type: 
  Country: None (occurrence: None)
  Receive Date: 20081015
  Receipt Date: 20081009
  Transmission Date: 20090506
  Serious: Yes (Hospitalization)
  Sender: FDA-Public Use
  Company Number: US-ABBOTT-08P-163-0480660-00

PATIENT
  Sex: Female
  Weight: 40.86 kg

DRUGS (13)
  1. HUMIRA [Suspect]
     Indication: CROHN'S DISEASE
     Route: 058
     Dates: start: 20080827, end: 20081008
  2. PREDNISONE [Concomitant]
     Indication: DRUG USE FOR UNKNOWN INDICATION
     Route: 048
  3. URSODIOL [Concomitant]
     Indication: DRUG USE FOR UNKNOWN INDICATION
     Route: 048
  4. ATENOLOL [Concomitant]
     Indication: DIZZINESS
     Route: 048
  5. FUROSEMIDE [Concomitant]
     Indication: OEDEMA
     Dosage: 20MG OR 40MG DAILY DEPENDS ON EDEMA
     Route: 048
  6. POTASSIUM CHLORIDE [Concomitant]
     Indication: DRUG USE FOR UNKNOWN INDICATION
     Route: 048
  7. CIPROFLOXACIN [Concomitant]
     Indication: DRUG USE FOR UNKNOWN INDICATION
     Route: 048
  8. ERGOCALCIFEROL [Concomitant]
     Indication: DRUG USE FOR UNKNOWN INDICATION
     Route: 048
  9. MULTIVITAMIN WITHOUT IRON [Concomitant]
     Indication: DRUG USE FOR UNKNOWN INDICATION
     Route: 048
  10. ALPRAZOLAM [Concomitant]
     Indication: MIGRAINE
  11. CODEINE SUL TAB [Concomitant]
     Indication: PAIN
     Route: 048
  12. CODEINE SUL TAB [Concomitant]
     Indication: MIGRAINE
  13. ZOMEG [Concomitant]
     Indication: MIGRAINE
     Route: 048

REACTIONS (8)
  - BACTERIAL INFECTION [None]
  - CHILLS [None]
  - DYSPNOEA [None]
  - FLUID RETENTION [None]
  - OEDEMA [None]
  - PALPITATIONS [None]
  - PYREXIA [None]
  - WHITE BLOOD CELL COUNT INCREASED [None]
